FAERS Safety Report 9376394 (Version 1)
Quarter: 2013Q3

REPORT INFORMATION
  Report Type: Spontaneous
  Country: AU (occurrence: AU)
  Receive Date: 20130701
  Receipt Date: 20130701
  Transmission Date: 20140515
  Serious: Yes (Hospitalization)
  Sender: FDA-Public Use
  Company Number: AU-JNJFOC-20130612162

PATIENT
  Age: 22 Year
  Sex: Female
  Weight: 70.9 kg

DRUGS (5)
  1. INVEGA [Suspect]
     Indication: PSYCHOTIC DISORDER
     Route: 048
     Dates: start: 20111119, end: 20111125
  2. PROPRANOLOL HYDROCHLORIDE [Concomitant]
     Route: 065
  3. ETHINYLESTRADIOL/LEVONORGESTREL [Concomitant]
     Route: 065
  4. MOVOX [Concomitant]
     Route: 065
  5. LAMOTRIGINE [Concomitant]
     Route: 065

REACTIONS (2)
  - Urticaria [Recovered/Resolved]
  - Hypotension [Recovered/Resolved]
